FAERS Safety Report 10244913 (Version 1)
Quarter: 2014Q2

REPORT INFORMATION
  Report Type: Spontaneous
  Country: US (occurrence: US)
  Receive Date: 20140618
  Receipt Date: 20140618
  Transmission Date: 20141212
  Serious: No
  Sender: FDA-Public Use
  Company Number: US-GALDERMA-US14001003

PATIENT
  Age: 23 Year
  Sex: Female

DRUGS (7)
  1. MIRVASO (BRIMONIDINE) TOPICAL GEL, 0.33% [Suspect]
     Indication: ROSACEA
     Dosage: 0.33%
     Route: 061
     Dates: start: 20140220, end: 20140312
  2. NEUTROGENA FOAMING CLEANSER [Concomitant]
     Indication: THERAPEUTIC SKIN CARE TOPICAL
     Route: 061
  3. CERAVE MOISTURIZING CREAM [Concomitant]
     Indication: DRY SKIN PROPHYLAXIS
     Route: 061
  4. BIOTIN [Concomitant]
     Dates: start: 201310
  5. NUVARING [Concomitant]
     Route: 067
  6. MULTIVITAMIN [Concomitant]
  7. METROGEL (METRONIDAZOLE) GEL [Concomitant]
     Route: 061
     Dates: start: 201402, end: 201403

REACTIONS (6)
  - Rash [Recovered/Resolved]
  - Feeling hot [Recovered/Resolved]
  - Skin exfoliation [Recovered/Resolved]
  - Erythema [Recovered/Resolved]
  - Skin burning sensation [Recovered/Resolved]
  - Off label use [Recovered/Resolved]
